FAERS Safety Report 13302024 (Version 1)
Quarter: 2017Q1

REPORT INFORMATION
  Report Type: Spontaneous
  Country: US (occurrence: US)
  Receive Date: 20170307
  Receipt Date: 20170307
  Transmission Date: 20170428
  Serious: Yes (Other)
  Sender: FDA-Public Use
  Company Number: US-PFIZER INC-2017093047

PATIENT
  Sex: Female

DRUGS (1)
  1. XELJANZ [Suspect]
     Active Substance: TOFACITINIB CITRATE
     Dosage: 5 MG, UNK
     Dates: start: 20161201

REACTIONS (18)
  - Pain in extremity [Unknown]
  - Pain [Unknown]
  - Musculoskeletal discomfort [Unknown]
  - Limb deformity [Unknown]
  - Peripheral coldness [Unknown]
  - Photosensitivity reaction [Unknown]
  - Glaucoma [Unknown]
  - Peripheral swelling [Unknown]
  - Joint swelling [Unknown]
  - Joint hyperextension [Unknown]
  - Finger deformity [Unknown]
  - Fatigue [Unknown]
  - Musculoskeletal stiffness [Unknown]
  - Musculoskeletal pain [Unknown]
  - Hand deformity [Unknown]
  - Knee deformity [Unknown]
  - Joint dislocation [Unknown]
  - Goitre [Unknown]
